FAERS Safety Report 7043853-3 (Version None)
Quarter: 2010Q4

REPORT INFORMATION
  Report Type: 
  Country: None (occurrence: None)
  Receive Date: 20101012
  Receipt Date: 20101012
  Transmission Date: 20110411
  Serious: Yes (Other)
  Sender: FDA-Public Use
  Company Number: None

PATIENT
  Age: 56 Year
  Sex: Male
  Weight: 74.8435 kg

DRUGS (2)
  1. AVAPRO [Suspect]
     Indication: HYPERTENSION
     Dosage: 300 MG
     Dates: start: 20100101, end: 20101010
  2. AVAPRO [Suspect]
     Indication: RENAL DISORDER
     Dosage: 300 MG
     Dates: start: 20100101, end: 20101010

REACTIONS (3)
  - CONDITION AGGRAVATED [None]
  - NERVE INJURY [None]
  - NEURALGIA [None]
